FAERS Safety Report 22627691 (Version 1)
Quarter: 2023Q2

REPORT INFORMATION
  Report Type: Spontaneous
  Country: CN (occurrence: CN)
  Receive Date: 20230622
  Receipt Date: 20230622
  Transmission Date: 20230722
  Serious: Yes (Other)
  Sender: FDA-Public Use
  Company Number: None

PATIENT
  Age: 59 Year
  Sex: Female
  Weight: 57 kg

DRUGS (8)
  1. CYCLOPHOSPHAMIDE [Suspect]
     Active Substance: CYCLOPHOSPHAMIDE
     Indication: Invasive ductal breast carcinoma
     Dosage: 0.9 G, QD, D1, Q21DAYS DILUTED WITH 100 ML OF SODIUM CHLORIDE INJECTION (AS A PART OF EC-T REGIMEN,
     Route: 041
     Dates: start: 20230206, end: 20230207
  2. CYCLOPHOSPHAMIDE [Suspect]
     Active Substance: CYCLOPHOSPHAMIDE
     Indication: Chemotherapy
  3. EPIRUBICIN [Suspect]
     Active Substance: EPIRUBICIN
     Indication: Invasive ductal breast carcinoma
     Dosage: 130 MG, QD,D1, DILUTED WITH 100 ML OF SODIUM CHLORIDE INJECTION (AS A PART OF EC-T REGIMEN,4TH CYCLE
     Route: 041
     Dates: start: 20230206, end: 20230207
  4. EPIRUBICIN [Suspect]
     Active Substance: EPIRUBICIN
     Indication: Chemotherapy
  5. PACLITAXEL [Suspect]
     Active Substance: PACLITAXEL
     Indication: Invasive ductal breast carcinoma
     Dosage: 260 MG/M2 D1 Q21 DAYS 4 CYCLES (AS A PART OF EC-T REGIMEN)
     Route: 065
     Dates: start: 20230207
  6. PACLITAXEL [Suspect]
     Active Substance: PACLITAXEL
     Indication: Chemotherapy
  7. SODIUM CHLORIDE [Suspect]
     Active Substance: SODIUM CHLORIDE
     Indication: Vehicle solution use
     Dosage: 100 ML, QD, USED TO DILUTE 0.9 G OF CYCLOPHOSPHAMIDE FOR INJECTION
     Route: 041
     Dates: start: 20230206, end: 20230207
  8. SODIUM CHLORIDE [Suspect]
     Active Substance: SODIUM CHLORIDE
     Dosage: 100 ML, QD, USED TO DILUTE 130 MG OF EPIRUBICIN HYDROCHLORIDE FOR INJECTION
     Route: 041
     Dates: start: 20230206, end: 20230207

REACTIONS (3)
  - Electrocardiogram abnormal [Unknown]
  - Left atrial hypertrophy [Unknown]
  - Left ventricular dysfunction [Unknown]

NARRATIVE: CASE EVENT DATE: 20230412
